FAERS Safety Report 23452796 (Version 2)
Quarter: 2024Q2

REPORT INFORMATION
  Report Type: Report from Study
  Country: GB (occurrence: GB)
  Receive Date: 20240129
  Receipt Date: 20240405
  Transmission Date: 20240716
  Serious: Yes (Other)
  Sender: FDA-Public Use
  Company Number: GB-002147023-NVSC2021GB300805

PATIENT
  Age: 42 Year
  Sex: Female

DRUGS (2)
  1. COSENTYX [Suspect]
     Active Substance: SECUKINUMAB
     Indication: Psoriatic arthropathy
     Dosage: 300 MG, QW (INDUCTION DOSE: WEEK 0, 1, 2, 3, 4 - 300MG, THEN 300MG MONTHLY)
     Route: 058
     Dates: start: 20211224
  2. COSENTYX [Suspect]
     Active Substance: SECUKINUMAB
     Dosage: 300 DOSAGE FORM, QMO
     Route: 058

REACTIONS (17)
  - Lower respiratory tract infection [Unknown]
  - Condition aggravated [Unknown]
  - Malaise [Unknown]
  - Nausea [Unknown]
  - Vomiting [Unknown]
  - Heart rate increased [Unknown]
  - Injection site rash [Unknown]
  - Oral herpes [Unknown]
  - Rash [Unknown]
  - Food allergy [Unknown]
  - Pain [Unknown]
  - COVID-19 [Unknown]
  - Viral infection [Unknown]
  - Product physical issue [Not Recovered/Not Resolved]
  - Infection [Not Recovered/Not Resolved]
  - Intentional dose omission [Unknown]
  - Product storage error [Unknown]
